FAERS Safety Report 4304172-9 (Version None)
Quarter: 2004Q1

REPORT INFORMATION
  Report Type: 
  Country: None (occurrence: None)
  Receive Date: 20040224
  Receipt Date: 20040210
  Transmission Date: 20041129
  Serious: Yes (Other)
  Sender: FDA-Public Use
  Company Number: 2004-BP-01157YA

PATIENT
  Age: 67 Year
  Sex: Male

DRUGS (1)
  1. HARNAL (TAMSULOSIN) (NR) (TAMSULOSIN HYDROCHLORIDE) [Suspect]
     Indication: BENIGN PROSTATIC HYPERPLASIA
     Dosage: 0.2 MG (NR, 0.2 MG DAILY)
     Route: 048
     Dates: start: 20040110, end: 20040209

REACTIONS (1)
  - JAUNDICE CHOLESTATIC [None]
